FAERS Safety Report 7389433-1 (Version None)
Quarter: 2011Q2

REPORT INFORMATION
  Report Type: 
  Country: None (occurrence: None)
  Receive Date: 20110401
  Receipt Date: 20110328
  Transmission Date: 20111010
  Serious: Yes (Hospitalization)
  Sender: FDA-Public Use
  Company Number: US-BRISTOL-MYERS SQUIBB COMPANY-15617921

PATIENT
  Age: 52 Year
  Sex: Female
  Weight: 56 kg

DRUGS (3)
  1. ERBITUX [Suspect]
     Indication: ANAL CANCER
     Dates: start: 20110214, end: 20110308
  2. FLUOROURACIL [Suspect]
     Indication: ANAL CANCER
     Dates: start: 20110222, end: 20110226
  3. CISPLATIN [Suspect]
     Indication: ANAL CANCER
     Dates: start: 20110222, end: 20110222

REACTIONS (5)
  - DECREASED APPETITE [None]
  - DIARRHOEA [None]
  - NAUSEA [None]
  - DEHYDRATION [None]
  - FATIGUE [None]
